FAERS Safety Report 6214600-X (Version None)
Quarter: 2009Q2

REPORT INFORMATION
  Report Type: 
  Country: None (occurrence: None)
  Receive Date: 20090604
  Receipt Date: 20090528
  Transmission Date: 20091009
  Serious: Yes (Hospitalization)
  Sender: FDA-Public Use
  Company Number: FR-PFIZER INC-2009219130

PATIENT
  Age: 75 Year

DRUGS (4)
  1. TAHOR [Suspect]
     Indication: HYPERCHOLESTEROLAEMIA
     Dosage: 1 DF, 1X/DAY
     Route: 048
     Dates: start: 20050711, end: 20080118
  2. FOSAMAX [Suspect]
     Indication: OSTEOPOROSIS
     Dosage: 1 DF, WEEKLY
     Route: 048
     Dates: start: 20030301, end: 20080116
  3. TRAMADOL HYDROCHLORIDE [Concomitant]
     Indication: PAIN
     Dosage: UNK
     Route: 048
  4. LORAZEPAM [Concomitant]
     Indication: INSOMNIA
     Dosage: UNK
     Route: 048

REACTIONS (2)
  - RENAL FAILURE [None]
  - THROMBOCYTOPENIA [None]
